FAERS Safety Report 13994654 (Version 3)
Quarter: 2018Q2

REPORT INFORMATION
  Report Type: Report from Study
  Country: None (occurrence: US)
  Receive Date: 20170921
  Receipt Date: 20180612
  Transmission Date: 20180711
  Serious: Yes (Other)
  Sender: FDA-Public Use
  Company Number: US-ABBVIE-17K-163-2014879-00

PATIENT
  Age: 55 Year
  Sex: Female
  Weight: 105.78 kg

DRUGS (5)
  1. HUMIRA [Suspect]
     Active Substance: ADALIMUMAB
     Indication: PSORIATIC ARTHROPATHY
     Route: 058
     Dates: start: 20170202
  2. GINKGO BILOBA [Concomitant]
     Active Substance: GINKGO
     Indication: PRODUCT USED FOR UNKNOWN INDICATION
  3. VITAMIN E [Concomitant]
     Active Substance: .ALPHA.-TOCOPHEROL
     Indication: PRODUCT USED FOR UNKNOWN INDICATION
  4. METHOTREXATE. [Concomitant]
     Active Substance: METHOTREXATE
     Indication: PRODUCT USED FOR UNKNOWN INDICATION
  5. LEVOTHYROXINE. [Concomitant]
     Active Substance: LEVOTHYROXINE
     Indication: PRODUCT USED FOR UNKNOWN INDICATION

REACTIONS (14)
  - Underdose [Not Recovered/Not Resolved]
  - Serum ferritin increased [Unknown]
  - Arthritis [Unknown]
  - Sinusitis [Recovering/Resolving]
  - Arthralgia [Not Recovered/Not Resolved]
  - Arterial occlusive disease [Not Recovered/Not Resolved]
  - Fatigue [Recovering/Resolving]
  - Aspartate aminotransferase increased [Unknown]
  - Hepatic steatosis [Not Recovered/Not Resolved]
  - Pain [Not Recovered/Not Resolved]
  - Blood alkaline phosphatase increased [Unknown]
  - Peripheral swelling [Unknown]
  - Alanine aminotransferase increased [Unknown]
  - Ear infection [Unknown]

NARRATIVE: CASE EVENT DATE: 2017
